FAERS Safety Report 23845326 (Version 1)
Quarter: 2024Q2

REPORT INFORMATION
  Report Type: Spontaneous
  Country: US (occurrence: US)
  Receive Date: 20240511
  Receipt Date: 20240511
  Transmission Date: 20240716
  Serious: Yes (Death)
  Sender: FDA-Public Use
  Company Number: US-DRL-USA-LIT/USA/24/0006894

PATIENT
  Age: 56 Year
  Sex: Male

DRUGS (2)
  1. FLUCONAZOLE [Suspect]
     Active Substance: FLUCONAZOLE
     Indication: Disseminated coccidioidomycosis
  2. amphotericin-B [amphotericin] [Concomitant]
     Indication: Disseminated coccidioidomycosis

REACTIONS (1)
  - Drug ineffective for unapproved indication [Fatal]
